FAERS Safety Report 20516860 (Version 2)
Quarter: 2022Q2

REPORT INFORMATION
  Report Type: Report from Study
  Country: US (occurrence: US)
  Receive Date: 20220225
  Receipt Date: 20220521
  Transmission Date: 20220721
  Serious: Yes (Hospitalization, Other)
  Sender: FDA-Public Use
  Company Number: US-ABBVIE-22K-163-4291504-00

PATIENT
  Age: 74 Year
  Sex: Male

DRUGS (13)
  1. IMBRUVICA [Suspect]
     Active Substance: IBRUTINIB
     Indication: Chronic lymphocytic leukaemia
     Route: 048
     Dates: start: 20210302, end: 202201
  2. IMBRUVICA [Suspect]
     Active Substance: IBRUTINIB
     Dosage: AT LOW DOSES
     Route: 048
     Dates: start: 202202
  3. IMBRUVICA [Suspect]
     Active Substance: IBRUTINIB
     Route: 048
     Dates: start: 202202
  4. IMBRUVICA [Suspect]
     Active Substance: IBRUTINIB
     Route: 048
     Dates: start: 20210302
  5. PFIZER-BIONTECH COVID-19 VACCINE [Concomitant]
     Active Substance: TOZINAMERAN
     Indication: COVID-19 immunisation
     Dosage: FIRST DOSE
     Route: 030
     Dates: start: 202101, end: 202101
  6. PFIZER-BIONTECH COVID-19 VACCINE [Concomitant]
     Active Substance: TOZINAMERAN
     Dosage: SECOND DOSE
     Route: 030
     Dates: start: 202102, end: 202102
  7. PFIZER-BIONTECH COVID-19 VACCINE [Concomitant]
     Active Substance: TOZINAMERAN
     Dosage: BOOSTER DOSE
     Route: 030
     Dates: start: 202110, end: 202110
  8. LASIX [Concomitant]
     Active Substance: FUROSEMIDE
     Indication: Diuretic therapy
  9. HYDROCHLOROTHIAZIDE [Concomitant]
     Active Substance: HYDROCHLOROTHIAZIDE
     Indication: Product used for unknown indication
  10. METOPROLOL [Concomitant]
     Active Substance: METOPROLOL
     Indication: Product used for unknown indication
  11. LOSARTAN [Concomitant]
     Active Substance: LOSARTAN
     Indication: Product used for unknown indication
  12. ELIQUIS [Concomitant]
     Active Substance: APIXABAN
     Indication: Product used for unknown indication
  13. POTASSIUM CHLORIDE [Concomitant]
     Active Substance: POTASSIUM CHLORIDE
     Indication: Product used for unknown indication

REACTIONS (10)
  - Cardiac ablation [Unknown]
  - Atrial fibrillation [Recovered/Resolved]
  - Weight increased [Recovered/Resolved]
  - Inflammation [Unknown]
  - Pleural effusion [Recovered/Resolved]
  - Intra-abdominal fluid collection [Unknown]
  - Renal disorder [Unknown]
  - Atrial fibrillation [Not Recovered/Not Resolved]
  - Weight decreased [Unknown]
  - SARS-CoV-2 antibody test negative [Unknown]

NARRATIVE: CASE EVENT DATE: 20210701
